FAERS Safety Report 8425735 (Version 3)
Quarter: 2012Q4

REPORT INFORMATION
  Report Type: Report from Study
  Country: US (occurrence: US)
  Receive Date: 20120224
  Receipt Date: 20120919
  Transmission Date: 20130627
  Serious: Yes (Hospitalization)
  Sender: FDA-Public Use
  Company Number: US-JNJFOC-20120209050

PATIENT
  Age: 15 Year
  Sex: Male
  Weight: 49.8 kg

DRUGS (5)
  1. REMICADE [Suspect]
     Indication: COLITIS ULCERATIVE
     Route: 042
     Dates: start: 20111102
  2. PREDNISONE [Concomitant]
  3. PREVACID [Concomitant]
  4. ERGOCALCIFEROL [Concomitant]
  5. FERROUS SULFATE [Concomitant]

REACTIONS (1)
  - Colitis ulcerative [Recovered/Resolved]
